FAERS Safety Report 5358750-9 (Version None)
Quarter: 2007Q2

REPORT INFORMATION
  Report Type: 
  Country: None (occurrence: None)
  Receive Date: 20070615
  Receipt Date: 20070606
  Transmission Date: 20071010
  Serious: Yes (Other)
  Sender: FDA-Public Use
  Company Number: FR-AMGEN-US226837

PATIENT
  Sex: Male

DRUGS (2)
  1. ENBREL [Suspect]
     Indication: ANKYLOSING SPONDYLITIS
     Dosage: 50 MG 1 TIME WEEKLY, WITH SEVERAL WITHDRAWAL ATTEMPTS
     Route: 058
     Dates: start: 20060201
  2. ENBREL [Suspect]
     Dosage: UNKNOWN
     Route: 058
     Dates: start: 20070101

REACTIONS (2)
  - ANKYLOSING SPONDYLITIS [None]
  - CHOROIDITIS [None]
